FAERS Safety Report 9718909 (Version 1)
Quarter: 2013Q4

REPORT INFORMATION
  Report Type: Spontaneous
  Country: US (occurrence: US)
  Receive Date: 20131127
  Receipt Date: 20131127
  Transmission Date: 20140711
  Serious: No
  Sender: FDA-Public Use
  Company Number: US-PFIZER INC-2013335825

PATIENT
  Age: 86 Year
  Sex: Female

DRUGS (11)
  1. LIPITOR [Suspect]
     Dosage: UNK
  2. TRAMADOL HCL [Suspect]
     Dosage: UNK
  3. CODEINE [Suspect]
     Dosage: UNK
  4. LEVAQUIN [Suspect]
     Dosage: UNK
  5. DEMEROL [Suspect]
     Dosage: UNK
  6. ZOCOR [Suspect]
     Dosage: UNK
  7. ALLOPURINOL [Suspect]
     Dosage: UNK
  8. CO-Q-10 [Suspect]
     Dosage: UNK
  9. LESCOL [Suspect]
     Dosage: UNK
  10. MEVACOR [Suspect]
     Dosage: UNK
  11. PRAVACHOL [Suspect]
     Dosage: UNK

REACTIONS (1)
  - Drug hypersensitivity [Unknown]
